FAERS Safety Report 15916774 (Version 1)
Quarter: 2019Q1

REPORT INFORMATION
  Report Type: Spontaneous
  Country: CH (occurrence: CH)
  Receive Date: 20190205
  Receipt Date: 20190205
  Transmission Date: 20190417
  Serious: Yes (Death, Other)
  Sender: FDA-Public Use
  Company Number: CH-ROCHE-2253992

PATIENT
  Age: 78 Year
  Sex: Male

DRUGS (3)
  1. GEMCITABINE [Suspect]
     Active Substance: GEMCITABINE\GEMCITABINE HYDROCHLORIDE
     Indication: DIFFUSE LARGE B-CELL LYMPHOMA
     Dosage: DAYS 1, 8 AND 15, EVERY 28 DAYS.
     Route: 042
  2. RITUXIMAB. [Suspect]
     Active Substance: RITUXIMAB
     Indication: DIFFUSE LARGE B-CELL LYMPHOMA
     Dosage: DAY 1, 8, 15 AND 22 OF THE FIRST CYCLE
     Route: 042
  3. RITUXIMAB. [Suspect]
     Active Substance: RITUXIMAB
     Dosage: DAY 1 OF THE SUBSEQUENT CYCLES
     Route: 042

REACTIONS (11)
  - White blood cell count decreased [Unknown]
  - Rash [Unknown]
  - Nausea [Unknown]
  - Febrile neutropenia [Unknown]
  - Neutropenia [Fatal]
  - Myocardial infarction [Unknown]
  - Peripheral sensory neuropathy [Unknown]
  - Platelet count decreased [Unknown]
  - Oedema peripheral [Unknown]
  - Diverticulitis [Fatal]
  - Red blood cell count decreased [Unknown]
